FAERS Safety Report 25121223 (Version 7)
Quarter: 2025Q3

REPORT INFORMATION
  Report Type: Spontaneous
  Country: US (occurrence: US)
  Receive Date: 20250326
  Receipt Date: 20250901
  Transmission Date: 20251021
  Serious: Yes (Hospitalization, Other)
  Sender: SANOFI AVENTIS
  Company Number: US-SA-2025SA084863

PATIENT
  Age: 62 Year
  Sex: Female

DRUGS (4)
  1. DUPIXENT [Suspect]
     Active Substance: DUPILUMAB
     Indication: Asthma
     Route: 058
     Dates: start: 202502, end: 202502
  2. DUPIXENT [Suspect]
     Active Substance: DUPILUMAB
     Indication: Chronic obstructive pulmonary disease
     Dosage: 300 MG, QOW
     Route: 058
     Dates: start: 202502
  3. ASPIRIN [Concomitant]
     Active Substance: ASPIRIN
  4. COLCHICINE [Concomitant]
     Active Substance: COLCHICINE

REACTIONS (13)
  - Pericardial effusion [Unknown]
  - Jaundice [Unknown]
  - Injection site urticaria [Recovered/Resolved]
  - Skin burning sensation [Recovered/Resolved]
  - Pruritus [Not Recovered/Not Resolved]
  - Urticaria [Recovered/Resolved]
  - Headache [Unknown]
  - Injection site pruritus [Recovered/Resolved]
  - Injection site pain [Recovered/Resolved]
  - Injection site swelling [Unknown]
  - Injection site erythema [Recovered/Resolved]
  - Injection site pain [Unknown]
  - Arthralgia [Unknown]

NARRATIVE: CASE EVENT DATE: 20250101
